FAERS Safety Report 5231889-4 (Version None)
Quarter: 2007Q1

REPORT INFORMATION
  Report Type: 
  Country: None (occurrence: None)
  Receive Date: 20070202
  Receipt Date: 20070124
  Transmission Date: 20070707
  Serious: Yes (Other)
  Sender: FDA-Public Use
  Company Number: 234770

PATIENT
  Sex: Female

DRUGS (7)
  1. OMALIZUMAB(OMALIZUMAB) PWDR + SOLVENT, INJECTION SOLN, 150MG [Suspect]
     Indication: DRUG USE FOR UNKNOWN INDICATION
  2. PREDNISONE [Concomitant]
  3. AMBIEN [Concomitant]
  4. ZOLOFT [Concomitant]
  5. RHINOCORT [Concomitant]
  6. PULMICORT [Concomitant]
  7. PRENATAL VITAMIN (MINERAL NOS, MULTIVITAMIN NOS) [Concomitant]

REACTIONS (4)
  - DRUG EXPOSURE DURING PREGNANCY [None]
  - GESTATIONAL DIABETES [None]
  - PREMATURE LABOUR [None]
  - PREMATURE RUPTURE OF MEMBRANES [None]
